FAERS Safety Report 10069073 (Version 1)
Quarter: 2014Q2

REPORT INFORMATION
  Report Type: Spontaneous
  Country: JP (occurrence: JP)
  Receive Date: 20140409
  Receipt Date: 20140409
  Transmission Date: 20141212
  Serious: Yes (Hospitalization, Other)
  Sender: FDA-Public Use
  Company Number: PHHY2014JP041648

PATIENT
  Age: 57 Year
  Sex: Male

DRUGS (4)
  1. RIFAMPICIN SANDOZ [Suspect]
     Indication: SPONDYLITIS
     Route: 048
     Dates: start: 201201
  2. SULFAMETHOXAZOLE+TRIMETHOPRIM [Suspect]
     Indication: SPONDYLITIS
     Route: 048
     Dates: start: 201201
  3. MINOCYCLINE HYDROCHLORIDE [Suspect]
     Indication: SPONDYLITIS
     Route: 048
     Dates: start: 201201
  4. VALSARTAN [Concomitant]
     Indication: HYPERTENSION
     Route: 048

REACTIONS (6)
  - Tumour necrosis [Unknown]
  - Hepatic fibrosis [Unknown]
  - Inflammation [Unknown]
  - Fibroma [Unknown]
  - Liver injury [Unknown]
  - Renal impairment [Unknown]
